FAERS Safety Report 18862138 (Version 1)
Quarter: 2021Q1

REPORT INFORMATION
  Report Type: Spontaneous
  Country: FR (occurrence: FR)
  Receive Date: 20210209
  Receipt Date: 20210209
  Transmission Date: 20210420
  Serious: Yes (Other)
  Sender: FDA-Public Use
  Company Number: FR-PFIZER INC-2021089286

PATIENT
  Age: 71 Year
  Sex: Female
  Weight: 64 kg

DRUGS (7)
  1. PYOSTACINE [Suspect]
     Active Substance: PRISTINAMYCIN
     Indication: PULMONARY MASS
     Dosage: Q6M
     Dates: start: 1985
  2. KARDEGIC [Concomitant]
     Active Substance: ASPIRIN DL-LYSINE
     Dosage: UNK
  3. PYOSTACINE [Suspect]
     Active Substance: PRISTINAMYCIN
     Indication: TOOTH DISORDER
     Dosage: ABOUT 2000 MG/DAY FOR 10 DAYS AND 2?3 TIMES A YEAR
     Dates: start: 202009
  4. ESTRADIOL. [Suspect]
     Active Substance: ESTRADIOL
     Dosage: UNK
  5. DUROGESIC [Concomitant]
     Active Substance: FENTANYL
     Dosage: UNK
  6. PYOSTACINE [Suspect]
     Active Substance: PRISTINAMYCIN
     Indication: TOOTH INFECTION
     Dosage: 2000 MG, QD
  7. ALDACTONE [Concomitant]
     Active Substance: SPIRONOLACTONE
     Dosage: UNK

REACTIONS (20)
  - COVID-19 [Unknown]
  - Scab [Not Recovered/Not Resolved]
  - Rash [Unknown]
  - Skin exfoliation [Unknown]
  - Aptyalism [Not Recovered/Not Resolved]
  - Bone pain [Not Recovered/Not Resolved]
  - Dry eye [Not Recovered/Not Resolved]
  - Cutaneous symptom [Not Recovered/Not Resolved]
  - Mucosal discolouration [Unknown]
  - Skin disorder [Unknown]
  - Foot deformity [Not Recovered/Not Resolved]
  - Blister [Unknown]
  - Abdominal distension [Unknown]
  - Lymphadenopathy [Not Recovered/Not Resolved]
  - Muscle atrophy [Not Recovered/Not Resolved]
  - Inner ear disorder [Unknown]
  - Functional gastrointestinal disorder [Unknown]
  - Muscular weakness [Unknown]
  - Gait disturbance [Unknown]
  - Vein disorder [Unknown]

NARRATIVE: CASE EVENT DATE: 202009
